FAERS Safety Report 4613903-X (Version None)
Quarter: 2005Q1

REPORT INFORMATION
  Report Type: 
  Country: None (occurrence: None)
  Receive Date: 20050321
  Receipt Date: 20050207
  Transmission Date: 20050727
  Serious: Yes (Hospitalization)
  Sender: FDA-Public Use
  Company Number: US-GLAXOSMITHKLINE-A0544277A

PATIENT
  Age: 69 Year
  Sex: Female
  Weight: 62.3 kg

DRUGS (6)
  1. TAGAMET [Suspect]
     Dosage: 200MG TWICE PER DAY
     Route: 048
     Dates: start: 20041201, end: 20050208
  2. LITHIUM [Concomitant]
  3. EFFEXOR [Concomitant]
  4. ZYPREXA [Concomitant]
  5. PROMETRIUM [Concomitant]
  6. PREMARIN [Concomitant]

REACTIONS (7)
  - ASTHENIA [None]
  - BLOOD CREATININE INCREASED [None]
  - FATIGUE [None]
  - NEPHRITIS INTERSTITIAL [None]
  - PYURIA [None]
  - RENAL FAILURE ACUTE [None]
  - TREMOR [None]
